FAERS Safety Report 8758351 (Version 4)
Quarter: 2012Q4

REPORT INFORMATION
  Report Type: 
  Country: JP (occurrence: JP)
  Receive Date: 20120829
  Receipt Date: 20121221
  Transmission Date: 20130627
  Serious: Yes (Death, Hospitalization, Other)
  Sender: FDA-Public Use
  Company Number: JP-AMGEN-JPNSP2012040597

PATIENT
  Age: 84 Year
  Sex: Male
  Weight: 54 kg

DRUGS (2)
  1. ENBREL [Suspect]
     Indication: RHEUMATOID ARTHRITIS
     Dosage: 25 mg, weekly
     Route: 058
     Dates: start: 20120111, end: 20120616
  2. ENBREL [Suspect]
     Dosage: 25 mg, weekly
     Route: 058
     Dates: start: 20120630, end: 20120710

REACTIONS (8)
  - Respiratory failure [Fatal]
  - Rheumatoid arthritis [Unknown]
  - Pyrexia [Unknown]
  - Decubitus ulcer [Unknown]
  - Musculoskeletal pain [Unknown]
  - Pneumonia [Fatal]
  - Hypoaesthesia [Recovered/Resolved]
  - Dysstasia [Unknown]
